FAERS Safety Report 19448411 (Version 1)
Quarter: 2021Q2

REPORT INFORMATION
  Report Type: Spontaneous
  Country: IE (occurrence: IE)
  Receive Date: 20210622
  Receipt Date: 20210622
  Transmission Date: 20210717
  Serious: Yes (Other)
  Sender: FDA-Public Use
  Company Number: IE-GLAXOSMITHKLINE-IE2021GSK129417

PATIENT
  Age: 43 Year
  Sex: Male

DRUGS (3)
  1. FLUCLOXACILLIN [Suspect]
     Active Substance: FLUCLOXACILLIN
     Dosage: UNK
     Route: 042
  2. FLUCLOXACILLIN [Suspect]
     Active Substance: FLUCLOXACILLIN
     Indication: SUPERINFECTION
     Dosage: UNK
     Route: 048
  3. ACICLOVIR [Suspect]
     Active Substance: ACYCLOVIR
     Indication: SUPERINFECTION
     Dosage: UNK
     Route: 048

REACTIONS (6)
  - Erythema [Recovered/Resolved]
  - Blister [Recovered/Resolved]
  - Rash pustular [Recovered/Resolved]
  - Drug ineffective [Unknown]
  - Acute generalised exanthematous pustulosis [Recovered/Resolved]
  - Rash vesicular [Recovered/Resolved]
